FAERS Safety Report 21973899 (Version 1)
Quarter: 2023Q1

REPORT INFORMATION
  Report Type: Spontaneous
  Country: US (occurrence: None)
  Receive Date: 20230208
  Receipt Date: 20230208
  Transmission Date: 20230418
  Serious: Yes (Life-Threatening, Other)
  Sender: FDA-Public Use
  Company Number: None

PATIENT
  Age: 61 Year
  Sex: Male
  Weight: 76.5 kg

DRUGS (1)
  1. VAZALORE [Suspect]
     Active Substance: ASPIRIN
     Indication: Headache
     Dosage: OTHER QUANTITY : 2 CAPSULE(S);?
     Dates: start: 20221124, end: 20221124

REACTIONS (4)
  - Vomiting [None]
  - Retching [None]
  - Respiratory distress [None]
  - Drug hypersensitivity [None]

NARRATIVE: CASE EVENT DATE: 20221124
